FAERS Safety Report 7555799-2 (Version None)
Quarter: 2011Q2

REPORT INFORMATION
  Report Type: 
  Country: None (occurrence: None)
  Receive Date: 20110618
  Receipt Date: 20110613
  Transmission Date: 20111010
  Serious: Yes (Other)
  Sender: FDA-Public Use
  Company Number: US-BAYER-2011-051051

PATIENT
  Sex: Female

DRUGS (2)
  1. YAZ [Suspect]
     Dosage: 1 DF, QD
     Route: 048
     Dates: start: 20060101, end: 20070101
  2. YASMIN [Suspect]
     Dosage: 1 DF, QD
     Route: 048
     Dates: start: 20060101, end: 20070101

REACTIONS (3)
  - GALLBLADDER DISORDER [None]
  - PAIN [None]
  - ANXIETY [None]
